FAERS Safety Report 7229326-3 (Version None)
Quarter: 2011Q1

REPORT INFORMATION
  Report Type: 
  Country: None (occurrence: None)
  Receive Date: 20110117
  Receipt Date: 20110111
  Transmission Date: 20110831
  Serious: Yes (Death)
  Sender: FDA-Public Use
  Company Number: CH-CELGENEUS-151-21880-10112838

PATIENT
  Sex: Male

DRUGS (19)
  1. CISPLATIN [Concomitant]
     Route: 065
     Dates: start: 20100901
  2. REVLIMID [Suspect]
     Indication: MULTIPLE MYELOMA
     Route: 048
     Dates: start: 20100301
  3. DOXORUBICIN [Concomitant]
     Indication: MULTIPLE MYELOMA
     Route: 065
     Dates: start: 20100701
  4. CISPLATIN [Concomitant]
     Indication: MULTIPLE MYELOMA
     Route: 065
     Dates: start: 20100701
  5. DOXORUBICIN [Concomitant]
     Route: 065
     Dates: start: 20100901
  6. PEGYLATED LIPOSOMAL DOXORUBICIN [Concomitant]
     Indication: MULTIPLE MYELOMA
     Route: 065
     Dates: start: 20100501
  7. REVLIMID [Suspect]
     Route: 048
     Dates: start: 20100901
  8. CYCLOPHOSPHAMIDE [Concomitant]
     Indication: MULTIPLE MYELOMA
     Route: 065
     Dates: start: 20100701
  9. DEXAMETHASONE [Concomitant]
     Dosage: LOW DOSE
     Route: 065
     Dates: start: 20100501
  10. ETOPOSIDE [Concomitant]
     Indication: MULTIPLE MYELOMA
     Route: 065
     Dates: start: 20100701
  11. DEXAMETHASONE [Concomitant]
     Indication: MULTIPLE MYELOMA
     Dosage: LOW DOSE
     Route: 065
     Dates: start: 20100301
  12. DEXAMETHASONE [Concomitant]
     Route: 065
     Dates: start: 20100701
  13. REVLIMID [Suspect]
     Route: 048
     Dates: start: 20100501
  14. BORTEZOMIB [Concomitant]
     Indication: MULTIPLE MYELOMA
     Route: 065
     Dates: start: 20100701
  15. BORTEZOMIB [Concomitant]
     Route: 065
     Dates: start: 20100901
  16. ETOPOSIDE [Concomitant]
     Route: 065
     Dates: start: 20100901
  17. REVLIMID [Suspect]
     Route: 048
     Dates: start: 20100701
  18. DEXAMETHASONE [Concomitant]
     Route: 065
     Dates: start: 20100901
  19. CYCLOPHOSPHAMIDE [Concomitant]
     Route: 065
     Dates: start: 20100901

REACTIONS (2)
  - DEATH [None]
  - MULTIPLE MYELOMA [None]
